APPROVED DRUG PRODUCT: SUS-PHRINE SULFITE FREE
Active Ingredient: EPINEPHRINE
Strength: 5MG/ML
Dosage Form/Route: INJECTABLE;INJECTION
Application: N007942 | Product #001
Applicant: FOREST LABORATORIES INC
Approved: Approved Prior to Jan 1, 1982 | RLD: No | RS: No | Type: DISCN